FAERS Safety Report 7189914-X (Version None)
Quarter: 2010Q4

REPORT INFORMATION
  Report Type: 
  Country: None (occurrence: None)
  Receive Date: 20101223
  Receipt Date: 20101217
  Transmission Date: 20110411
  Serious: Yes (Other)
  Sender: FDA-Public Use
  Company Number: US-RANBAXY-2010US-40471

PATIENT

DRUGS (4)
  1. ISOTRETINOIN [Suspect]
     Indication: ACNE
     Dosage: UNK, UNK
     Dates: start: 20031208, end: 20061127
  2. ACCUTANE [Suspect]
     Indication: ACNE
     Dosage: UNK UNK
     Route: 065
     Dates: start: 20031208, end: 20061127
  3. CLARAVIS [Suspect]
     Indication: ACNE
     Dosage: UNK, UNK
     Route: 065
     Dates: start: 20031208, end: 20061127
  4. AMNESTEEM [Suspect]
     Indication: ACNE
     Dosage: UNK, UNK
     Route: 065
     Dates: start: 20031208, end: 20061127

REACTIONS (1)
  - GASTROINTESTINAL INJURY [None]
